FAERS Safety Report 25018205 (Version 3)
Quarter: 2025Q1

REPORT INFORMATION
  Report Type: Spontaneous
  Country: CA (occurrence: CA)
  Receive Date: 20250227
  Receipt Date: 20250313
  Transmission Date: 20250409
  Serious: Yes (Hospitalization)
  Sender: PFIZER
  Company Number: CA-PFIZER INC-202500043474

PATIENT
  Age: 62 Year
  Sex: Female

DRUGS (1)
  1. ABRILADA [Suspect]
     Active Substance: ADALIMUMAB-AFZB
     Indication: Ankylosing spondylitis
     Route: 058
     Dates: start: 20250224

REACTIONS (10)
  - Erythema [Unknown]
  - Swollen tongue [Unknown]
  - Heart rate increased [Unknown]
  - Abdominal discomfort [Unknown]
  - Discomfort [Unknown]
  - Feeling jittery [Unknown]
  - Paraesthesia [Unknown]
  - Formication [Unknown]
  - Head discomfort [Unknown]
  - Malaise [Unknown]

NARRATIVE: CASE EVENT DATE: 20250101
